FAERS Safety Report 7161936-4 (Version None)
Quarter: 2010Q4

REPORT INFORMATION
  Report Type: 
  Country: None (occurrence: None)
  Receive Date: 20101201
  Receipt Date: 20101122
  Transmission Date: 20110411
  Serious: Yes (Hospitalization)
  Sender: FDA-Public Use
  Company Number: 022544

PATIENT

DRUGS (1)
  1. KEPPRA [Suspect]

REACTIONS (2)
  - DYSPHAGIA [None]
  - HOSPITALISATION [None]
